FAERS Safety Report 6340878-8 (Version None)
Quarter: 2009Q3

REPORT INFORMATION
  Report Type: 
  Country: None (occurrence: None)
  Receive Date: 20090904
  Receipt Date: 20090828
  Transmission Date: 20100115
  Serious: No
  Sender: FDA-Public Use
  Company Number: AT-JNJFOC-20090809395

PATIENT
  Age: 78 Year
  Sex: Male

DRUGS (2)
  1. DURAGESIC-100 [Suspect]
     Dosage: SINCE ONE WEEK
     Route: 062
  2. DURAGESIC-100 [Suspect]
     Indication: NEURALGIA
     Dosage: SINCE ONE MONTH
     Route: 062

REACTIONS (4)
  - CONSTIPATION [None]
  - DRUG PRESCRIBING ERROR [None]
  - FATIGUE [None]
  - VERTIGO [None]
